FAERS Safety Report 5107931-8 (Version None)
Quarter: 2006Q3

REPORT INFORMATION
  Report Type: 
  Country: None (occurrence: None)
  Receive Date: 20060915
  Receipt Date: 20060831
  Transmission Date: 20061208
  Serious: Yes (Hospitalization)
  Sender: FDA-Public Use
  Company Number: 2006S1008267

PATIENT
  Age: 78 Year
  Sex: Male

DRUGS (1)
  1. FENTANYL TRANSDERMAL SYSTEM [Suspect]
     Dosage: TDER
     Route: 062
     Dates: end: 20060803

REACTIONS (1)
  - MYOCARDIAL INFARCTION [None]
